FAERS Safety Report 9888628 (Version 2)
Quarter: 2014Q1

REPORT INFORMATION
  Report Type: Spontaneous
  Country: US (occurrence: US)
  Receive Date: 20140211
  Receipt Date: 20140328
  Transmission Date: 20141002
  Serious: Yes (Hospitalization)
  Sender: FDA-Public Use
  Company Number: US-BAYER-2014-020588

PATIENT
  Age: 76 Year
  Sex: Male
  Weight: 69.39 kg

DRUGS (2)
  1. XOFIGO [Suspect]
     Indication: PROSTATE CANCER
     Dosage: 93.9 ?CI
     Dates: start: 20131231, end: 20131231
  2. XOFIGO [Suspect]
     Indication: METASTASES TO BONE
     Dosage: 90.7 ?CI
     Dates: start: 20140128, end: 20140128

REACTIONS (3)
  - Disorientation [None]
  - Cerebrovascular accident [None]
  - Cardiac arrest [None]
